FAERS Safety Report 10350902 (Version 1)
Quarter: 2014Q3

REPORT INFORMATION
  Report Type: Spontaneous
  Country: US (occurrence: US)
  Receive Date: 20140730
  Receipt Date: 20140730
  Transmission Date: 20150326
  Serious: No
  Sender: FDA-Public Use
  Company Number: US-TEVA-497464USA

PATIENT
  Sex: Male
  Weight: 74.91 kg

DRUGS (3)
  1. AZILECT [Suspect]
     Active Substance: RASAGILINE MESYLATE
     Indication: PARKINSON^S DISEASE
     Dates: start: 20140704
  2. SINEMET [Concomitant]
     Active Substance: CARBIDOPA\LEVODOPA
     Route: 048
  3. NEUPRO PATCH [Concomitant]
     Indication: PARKINSON^S DISEASE
     Route: 062

REACTIONS (8)
  - Activities of daily living impaired [Not Recovered/Not Resolved]
  - Body height decreased [Not Recovered/Not Resolved]
  - Dyskinesia [Not Recovered/Not Resolved]
  - Memory impairment [Not Recovered/Not Resolved]
  - Movement disorder [Not Recovered/Not Resolved]
  - Muscle tightness [Not Recovered/Not Resolved]
  - Blood pressure abnormal [Not Recovered/Not Resolved]
  - Hypokinesia [Not Recovered/Not Resolved]

NARRATIVE: CASE EVENT DATE: 2014
